FAERS Safety Report 24723017 (Version 1)
Quarter: 2024Q4

REPORT INFORMATION
  Report Type: Spontaneous
  Country: US (occurrence: US)
  Receive Date: 20241211
  Receipt Date: 20241211
  Transmission Date: 20250114
  Serious: No
  Sender: BAYER HEALTHCARE LLC
  Company Number: US-BAYER-2024A174546

PATIENT
  Age: 67 Year
  Sex: Female

DRUGS (2)
  1. MIRALAX [Suspect]
     Active Substance: POLYETHYLENE GLYCOL 3350
     Dosage: 1 FULL CAP UNTIL THE WHITE SECTION WITH WATER
     Route: 048
     Dates: start: 20241119, end: 20241209
  2. ASPIRIN [Suspect]
     Active Substance: ASPIRIN

REACTIONS (3)
  - Flatulence [Not Recovered/Not Resolved]
  - Drug ineffective [None]
  - Product use issue [None]

NARRATIVE: CASE EVENT DATE: 20241119
